FAERS Safety Report 22337532 (Version 1)
Quarter: 2023Q2

REPORT INFORMATION
  Report Type: Spontaneous
  Country: HR (occurrence: HR)
  Receive Date: 20230518
  Receipt Date: 20230518
  Transmission Date: 20230721
  Serious: Yes (Other)
  Sender: FDA-Public Use
  Company Number: HR-GLAXOSMITHKLINE-HR2023GSK069677

PATIENT

DRUGS (1)
  1. ALBUTEROL [Suspect]
     Active Substance: ALBUTEROL
     Indication: Infection
     Dosage: UNK
     Dates: start: 20230304, end: 20230304

REACTIONS (3)
  - Hypokalaemia [Unknown]
  - Tachycardia [Unknown]
  - Wrong dose [Unknown]

NARRATIVE: CASE EVENT DATE: 20230304
